FAERS Safety Report 7723617-5 (Version None)
Quarter: 2011Q3

REPORT INFORMATION
  Report Type: 
  Country: None (occurrence: None)
  Receive Date: 20110826
  Receipt Date: 20110811
  Transmission Date: 20111222
  Serious: Yes (Death, Hospitalization)
  Sender: FDA-Public Use
  Company Number: 2011P1007180

PATIENT
  Age: 81 Year
  Sex: Female
  Weight: 113.3993 kg

DRUGS (2)
  1. SANTYL [Suspect]
     Indication: WOUND
     Dosage: 2 OR 3 TIMES PER WEEK;TOP
     Route: 061
     Dates: start: 20110601
  2. LIDOCAINE [Concomitant]

REACTIONS (2)
  - DRUG INEFFECTIVE [None]
  - MYOCARDIAL INFARCTION [None]
